FAERS Safety Report 5859985-9 (Version None)
Quarter: 2008Q3

REPORT INFORMATION
  Report Type: 
  Country: None (occurrence: None)
  Receive Date: 20080827
  Receipt Date: 20080819
  Transmission Date: 20090109
  Serious: Yes (Hospitalization)
  Sender: FDA-Public Use
  Company Number: US-ELI_LILLY_AND_COMPANY-US200808003830

PATIENT
  Sex: Female
  Weight: 111 kg

DRUGS (5)
  1. BYETTA [Suspect]
     Indication: TYPE 2 DIABETES MELLITUS
     Dosage: 5 UG, 2/D
     Route: 058
     Dates: start: 20070101, end: 20070101
  2. BYETTA [Suspect]
     Dosage: 10 UG, 2/D
     Route: 058
     Dates: start: 20070101
  3. GLIPIZIDE [Concomitant]
     Indication: DIABETES MELLITUS
  4. TORSEMIDE [Concomitant]
     Indication: FLUID RETENTION
     Dosage: 40 MG, EACH MORNING
  5. COUMADIN [Concomitant]
     Dosage: 3 MG, DAILY (1/D)
     Route: 048

REACTIONS (10)
  - BLISTER [None]
  - CONTUSION [None]
  - FALL [None]
  - FLUID RETENTION [None]
  - LOCALISED INFECTION [None]
  - MOBILITY DECREASED [None]
  - OEDEMA PERIPHERAL [None]
  - PNEUMONIA [None]
  - POLLAKIURIA [None]
  - RENAL FAILURE [None]
